FAERS Safety Report 13042059 (Version 4)
Quarter: 2019Q3

REPORT INFORMATION
  Report Type: Spontaneous
  Country: US (occurrence: US)
  Receive Date: 20161219
  Receipt Date: 20190814
  Transmission Date: 20191004
  Serious: No
  Sender: FDA-Public Use
  Company Number: US-PFIZER INC-2016577569

PATIENT
  Sex: Female

DRUGS (3)
  1. NITROFURANTOIN SODIUM. [Suspect]
     Active Substance: NITROFURANTOIN SODIUM
     Dosage: UNK
  2. CIPROFLOXACIN. [Suspect]
     Active Substance: CIPROFLOXACIN
     Dosage: 1 DF, 2X/DAY (1 TABLET BID FOR 5 DAYS)
     Route: 048
     Dates: start: 20150313, end: 20150315
  3. AUGMENTIN [Suspect]
     Active Substance: AMOXICILLIN\CLAVULANATE POTASSIUM
     Dosage: UNK

REACTIONS (1)
  - Drug hypersensitivity [Unknown]
